FAERS Safety Report 7778453-0 (Version None)
Quarter: 2011Q3

REPORT INFORMATION
  Report Type: 
  Country: None (occurrence: None)
  Receive Date: 20110926
  Receipt Date: 20110921
  Transmission Date: 20111222
  Serious: Yes (Hospitalization)
  Sender: FDA-Public Use
  Company Number: JP-GLAXOSMITHKLINE-B0734986A

PATIENT
  Sex: Female

DRUGS (5)
  1. VALTREX [Suspect]
     Indication: HERPES ZOSTER
     Dosage: 1500MG PER DAY
     Route: 048
     Dates: start: 20110704, end: 20110706
  2. MUCOSTA [Concomitant]
     Route: 048
  3. METHYCOBAL [Concomitant]
     Route: 065
  4. LOXONIN [Concomitant]
     Route: 065
  5. DIALYSIS [Concomitant]

REACTIONS (3)
  - SOMNOLENCE [None]
  - ALTERED STATE OF CONSCIOUSNESS [None]
  - DISORIENTATION [None]
